FAERS Safety Report 7937121-2 (Version None)
Quarter: 2011Q4

REPORT INFORMATION
  Report Type: 
  Country: None (occurrence: None)
  Receive Date: 20111123
  Receipt Date: 20111114
  Transmission Date: 20120403
  Serious: Yes (Other)
  Sender: FDA-Public Use
  Company Number: FR-GENZYME-THYM-1002904

PATIENT
  Sex: Female
  Weight: 73 kg

DRUGS (17)
  1. FLUDARA [Concomitant]
     Indication: BONE MARROW CONDITIONING REGIMEN
     Dosage: 54.72 MG, QD
     Dates: start: 20111020, end: 20111023
  2. GABAPENTIN [Concomitant]
     Indication: PRODUCT USED FOR UNKNOWN INDICATION
     Dosage: 300 MG, TID
     Dates: start: 20111018
  3. DELURSAN [Concomitant]
     Indication: PRODUCT USED FOR UNKNOWN INDICATION
     Dosage: 500 MG, QD
     Dates: start: 20111020
  4. VALACYCLOVIR HYDROCHLORIDE [Concomitant]
     Indication: PRODUCT USED FOR UNKNOWN INDICATION
     Dosage: 500 MG, Q4HR
     Dates: start: 20111018, end: 20111025
  5. SOLU-MEDROL [Concomitant]
     Indication: BONE MARROW CONDITIONING REGIMEN
     Dosage: 20 MG, BID
     Dates: start: 20111022, end: 20111024
  6. TRACITRAN [Concomitant]
     Indication: PRODUCT USED FOR UNKNOWN INDICATION
     Dosage: UNK
     Dates: start: 20111018
  7. ZOFRAN [Concomitant]
     Indication: PRODUCT USED FOR UNKNOWN INDICATION
     Dosage: UNK
     Dates: start: 20111020, end: 20111026
  8. AMITRIPTYLINE HCL [Concomitant]
     Indication: PRODUCT USED FOR UNKNOWN INDICATION
     Dosage: 25 MG, QD
     Dates: start: 20111018
  9. MAGNESIUM SULFATE [Concomitant]
     Indication: PRODUCT USED FOR UNKNOWN INDICATION
     Dosage: UNK
     Dates: start: 20111018
  10. PLITICAN [Concomitant]
     Indication: PRODUCT USED FOR UNKNOWN INDICATION
     Dosage: 50 MG, Q4HR
     Dates: start: 20111022
  11. CYCLOPHOSPHAMIDE [Concomitant]
     Indication: BONE MARROW CONDITIONING REGIMEN
     Dosage: 547.2 MG, QD
     Dates: start: 20111020, end: 20111023
  12. POLARAMINE [Concomitant]
     Indication: BONE MARROW CONDITIONING REGIMEN
     Dosage: 10 MG, UNK
     Route: 042
     Dates: start: 20111022, end: 20111023
  13. MESNA [Concomitant]
     Indication: PRODUCT USED FOR UNKNOWN INDICATION
     Dosage: 182.4 MG, QID
     Dates: start: 20111020, end: 20111025
  14. CERNEVIT-12 [Concomitant]
     Indication: PRODUCT USED FOR UNKNOWN INDICATION
     Dosage: UNK
     Dates: start: 20111018
  15. THYMOGLOBULIN [Suspect]
     Indication: BONE MARROW CONDITIONING REGIMEN
     Dosage: 275 MG, QD
     Dates: start: 20111022, end: 20111022
  16. PANTOPRAZOLE [Concomitant]
     Indication: PRODUCT USED FOR UNKNOWN INDICATION
     Dosage: 20 MG, QD
     Dates: start: 20111018
  17. OXYCODONE HCL [Concomitant]
     Indication: PRODUCT USED FOR UNKNOWN INDICATION
     Dosage: 5 MG, Q4HR
     Dates: start: 20111018

REACTIONS (2)
  - HYPOTENSION [None]
  - CYTOLYTIC HEPATITIS [None]
